FAERS Safety Report 8486850-3 (Version None)
Quarter: 2012Q3

REPORT INFORMATION
  Report Type: 
  Country: None (occurrence: None)
  Receive Date: 20120704
  Receipt Date: 20120621
  Transmission Date: 20120928
  Serious: Yes (Hospitalization, Other)
  Sender: FDA-Public Use
  Company Number: IT-AMGEN-ITASP2011069817

PATIENT
  Age: 71 Year
  Sex: Female

DRUGS (3)
  1. METHOTREXATE [Concomitant]
     Dosage: 10 MG, UNK
     Route: 030
  2. PREDNISONE [Concomitant]
     Dosage: 5 MG, 1X/DAY
     Route: 048
  3. ENBREL [Suspect]
     Indication: RHEUMATOID ARTHRITIS
     Dosage: 50 MG, WEEKLY
     Route: 058
     Dates: start: 20110401, end: 20111108

REACTIONS (3)
  - GLOMERULONEPHRITIS [None]
  - SKIN ULCER [None]
  - NEPHROTIC SYNDROME [None]
